FAERS Safety Report 19179958 (Version 1)
Quarter: 2021Q2

REPORT INFORMATION
  Report Type: Spontaneous
  Country: US (occurrence: US)
  Receive Date: 20210426
  Receipt Date: 20210426
  Transmission Date: 20210717
  Serious: No
  Sender: FDA-Public Use
  Company Number: None

PATIENT
  Age: 87 Year
  Sex: Male
  Weight: 72 kg

DRUGS (1)
  1. SEROQUEL [Suspect]
     Active Substance: QUETIAPINE FUMARATE
     Indication: DEPRESSION
     Dates: start: 20210325, end: 20210325

REACTIONS (4)
  - Cervical vertebral fracture [None]
  - Oedema [None]
  - Cardiac failure congestive [None]
  - Fall [None]

NARRATIVE: CASE EVENT DATE: 20210325
